FAERS Safety Report 25795477 (Version 1)
Quarter: 2025Q3

REPORT INFORMATION
  Report Type: Spontaneous
  Country: US (occurrence: None)
  Receive Date: 20250911
  Receipt Date: 20250911
  Transmission Date: 20251020
  Serious: No
  Sender: FDA-CTU
  Company Number: None

PATIENT
  Age: 80 Year
  Sex: Male

DRUGS (10)
  1. BRAFTOVI [Suspect]
     Active Substance: ENCORAFENIB
     Indication: Colorectal cancer
     Dosage: OTHER QUANTITY : TK 4 CS (300MG TOTAL)  ;?FREQUENCY : DAILY;?
     Dates: start: 20250816
  2. ASPIRIN 81 EC LOW DOSE [Concomitant]
  3. ATORVASTATIN [Concomitant]
     Active Substance: ATORVASTATIN
  4. CALCIUM ACETATE [Concomitant]
     Active Substance: CALCIUM ACETATE
  5. FAMOTIDINE [Concomitant]
     Active Substance: FAMOTIDINE
  6. LIDOCAINE 4% [Concomitant]
     Active Substance: LIDOCAINE
  7. TAMSULOSIN [Concomitant]
     Active Substance: TAMSULOSIN
  8. TYLENOL [Concomitant]
     Active Substance: ACETAMINOPHEN
  9. VITAMIN D3 [Concomitant]
     Active Substance: CHOLECALCIFEROL
  10. ERBITUX [Concomitant]
     Active Substance: CETUXIMAB

REACTIONS (1)
  - Pneumonia [None]

NARRATIVE: CASE EVENT DATE: 20250902
